FAERS Safety Report 7816609-9 (Version None)
Quarter: 2011Q4

REPORT INFORMATION
  Report Type: 
  Country: None (occurrence: None)
  Receive Date: 20111017
  Receipt Date: 20111013
  Transmission Date: 20120403
  Serious: Yes (Death, Hospitalization)
  Sender: FDA-Public Use
  Company Number: JP-B.I. PHARMACEUTICALS,INC./RIDGEFIELD-2011-BP-20289NB

PATIENT
  Sex: Male
  Weight: 69 kg

DRUGS (10)
  1. TICLOPIDINE HCL [Suspect]
     Indication: CEREBRAL INFARCTION
     Dosage: 200 MG
     Route: 048
     Dates: start: 20030101, end: 20110408
  2. CONIEL [Concomitant]
     Indication: HYPERTENSION
     Dosage: 4 MG
     Route: 048
     Dates: start: 20091205, end: 20110408
  3. CARVEDILOL [Concomitant]
     Indication: CARDIAC FAILURE
     Dosage: 5 MG
     Route: 048
     Dates: start: 20091029, end: 20110408
  4. PRAVASTATIN SODIUM [Concomitant]
     Indication: HYPERLIPIDAEMIA
     Dosage: 10 MG
     Route: 048
     Dates: start: 19940201, end: 20110408
  5. PRADAXA [Suspect]
     Indication: ATRIAL FIBRILLATION
     Dosage: 300 MG
     Route: 048
     Dates: start: 20110329, end: 20110408
  6. ASPIRIN [Suspect]
     Indication: ANGINA PECTORIS
     Dosage: 100 MG
     Route: 048
     Dates: start: 19940201, end: 20110408
  7. ISOSORBIDE MONONITRATE [Concomitant]
     Indication: ANGINA PECTORIS
     Dosage: 40 MG
     Route: 048
     Dates: start: 19940201, end: 20110408
  8. CEROCRAL [Concomitant]
     Indication: CEREBRAL INFARCTION
     Dosage: 60 MG
     Route: 048
     Dates: start: 20030101, end: 20110408
  9. TANATRIL [Concomitant]
     Indication: DYSPHAGIA
     Dosage: 5 MG
     Route: 048
     Dates: start: 20100119, end: 20110408
  10. SIGMART [Concomitant]
     Indication: ANGINA PECTORIS
     Dosage: 15 MG
     Route: 048
     Dates: start: 19940201, end: 20110408

REACTIONS (1)
  - SUBARACHNOID HAEMORRHAGE [None]
